FAERS Safety Report 11544332 (Version 1)
Quarter: 2015Q3

REPORT INFORMATION
  Report Type: Spontaneous
  Country: JP (occurrence: JP)
  Receive Date: 20150924
  Receipt Date: 20150924
  Transmission Date: 20151125
  Serious: Yes (Hospitalization, Other)
  Sender: FDA-Public Use
  Company Number: JP-ASTRAZENECA-2015SE91082

PATIENT
  Age: 80 Year
  Sex: Female

DRUGS (11)
  1. DOGMATYL [Suspect]
     Active Substance: SULPIRIDE
     Route: 065
  2. MYSLEE [Concomitant]
     Active Substance: ZOLPIDEM TARTRATE
  3. MIRTAZAPINE. [Concomitant]
     Active Substance: MIRTAZAPINE
  4. MAINTATE [Concomitant]
     Active Substance: BISOPROLOL FUMARATE
  5. CYMBALTA [Concomitant]
     Active Substance: DULOXETINE HYDROCHLORIDE
  6. LENDORMIN [Concomitant]
     Active Substance: BROTIZOLAM
  7. OMEPRAZOLE. [Suspect]
     Active Substance: OMEPRAZOLE
     Route: 048
  8. SELBEX [Concomitant]
     Active Substance: TEPRENONE
  9. SANMEL [Concomitant]
  10. SENNOSIDE [Concomitant]
     Active Substance: SENNOSIDES
  11. DEPAS [Concomitant]
     Active Substance: ETIZOLAM

REACTIONS (3)
  - Ventricular tachycardia [Recovered/Resolved]
  - Long QT syndrome [Recovered/Resolved]
  - Ventricular fibrillation [Recovered/Resolved]
